FAERS Safety Report 19975762 (Version 5)
Quarter: 2022Q1

REPORT INFORMATION
  Report Type: Report from Study
  Country: US (occurrence: None)
  Receive Date: 20211020
  Receipt Date: 20220225
  Transmission Date: 20220423
  Serious: Yes (Hospitalization, Other)
  Sender: FDA-Public Use
  Company Number: US-ROCHE-2931378

PATIENT
  Age: 77 Year
  Sex: Female
  Weight: 60.9 kg

DRUGS (3)
  1. ATEZOLIZUMAB [Suspect]
     Active Substance: ATEZOLIZUMAB
     Indication: Small cell lung cancer
     Dosage: ON 08/FEB/2021, THE MOST RECENT DOSE OF ATEZOLIZUMAB (MPDL3280A). TOTAL DOSE:1200 MG?DATE OF LAST DO
     Route: 041
     Dates: start: 20201228
  2. CISPLATIN [Suspect]
     Active Substance: CISPLATIN
     Indication: Small cell lung cancer
     Dosage: ON 08/FEB/2021, SHE RECEIVED LAST ADMINISTERED DOSE OF CISPLATIN (NUTROPENIA, LOW HEMOGLOBIN AND HEM
     Route: 042
     Dates: start: 20201207
  3. ETOPOSIDE [Suspect]
     Active Substance: ETOPOSIDE
     Indication: Small cell lung cancer
     Dosage: TOTAL DOSE: 179 MG?ON 20/JAN/2021, SHE RECEIVED LAST DOSE OF ETOPOSIDE (NUTROPENIA, LOW HEMOGLOBIN A
     Route: 042
     Dates: start: 20201207

REACTIONS (10)
  - Febrile neutropenia [Recovered/Resolved]
  - Oesophagitis [Recovered/Resolved]
  - Haemoglobin decreased [Recovered/Resolved]
  - Haematocrit decreased [Recovered/Resolved]
  - Febrile neutropenia [Recovered/Resolved]
  - White blood cell count decreased [Recovered/Resolved]
  - Anaemia [Recovered/Resolved]
  - Thrombocytopenia [Recovered/Resolved]
  - Neutropenia [Recovering/Resolving]
  - Platelet count decreased [Unknown]

NARRATIVE: CASE EVENT DATE: 20210125
